FAERS Safety Report 8800398 (Version 3)
Quarter: 2013Q1

REPORT INFORMATION
  Report Type: Spontaneous
  Country: GB (occurrence: GB)
  Receive Date: 20120921
  Receipt Date: 20130131
  Transmission Date: 20140127
  Serious: Yes (Hospitalization)
  Sender: FDA-Public Use
  Company Number: PHFR2012GB004951

PATIENT
  Age: 46 Year
  Sex: Male

DRUGS (3)
  1. CLOZARIL [Suspect]
     Indication: SCHIZOPHRENIA
     Dosage: 1 DF, BID
     Route: 048
     Dates: start: 20100105
  2. METHADONE [Suspect]
  3. VALIUM [Suspect]

REACTIONS (7)
  - Drug abuse [Unknown]
  - Opiates positive [Unknown]
  - Balance disorder [Unknown]
  - White blood cell count increased [Not Recovered/Not Resolved]
  - Neutrophil count increased [Not Recovered/Not Resolved]
  - Somnolence [Unknown]
  - Abnormal behaviour [Unknown]
